FAERS Safety Report 4522842-4 (Version None)
Quarter: 2004Q4

REPORT INFORMATION
  Report Type: 
  Country: None (occurrence: None)
  Receive Date: 20041209
  Receipt Date: 20041102
  Transmission Date: 20050328
  Serious: Yes (Hospitalization, Disabling)
  Sender: FDA-Public Use
  Company Number: US-MERCK-0411USA00414

PATIENT
  Age: 50 Year
  Sex: Female

DRUGS (5)
  1. VIOXX [Suspect]
     Indication: ARTHROPATHY
     Route: 048
     Dates: start: 20020101, end: 20040901
  2. SYNTHROID [Concomitant]
     Route: 065
  3. GLIPIZIDE [Concomitant]
     Route: 065
  4. HYDRODIURIL [Concomitant]
     Route: 065
  5. THIORIDAZINE [Concomitant]
     Route: 065

REACTIONS (2)
  - CONFUSIONAL STATE [None]
  - PAIN IN EXTREMITY [None]
